FAERS Safety Report 24453479 (Version 2)
Quarter: 2024Q4

REPORT INFORMATION
  Report Type: Report from Study
  Country: US (occurrence: US)
  Receive Date: 20241017
  Receipt Date: 20241018
  Transmission Date: 20250115
  Serious: No
  Sender: ROCHE
  Company Number: US-ROCHE-3284227

PATIENT
  Age: 53 Year
  Sex: Female

DRUGS (2)
  1. RITUXAN [Suspect]
     Active Substance: RITUXIMAB
     Indication: Rheumatoid arthritis
     Dosage: THEN EVERY 4 MONTHS. VIAL, DATE OF SERVICE: 23/DEC/2021,06/JAN/2022, 28/FEB/2023 AND 17/MAR/2023
     Route: 042
  2. RITUXAN [Suspect]
     Active Substance: RITUXIMAB
     Dosage: ON DAY 1 AND DAY 15 AND THEN EVERY 4 MONTHS. VIAL, DATE OF SERVICE: 23/DEC/2021,06/JAN/2022, 28/FEB/
     Route: 042

REACTIONS (2)
  - Off label use [Unknown]
  - No adverse event [Unknown]
